FAERS Safety Report 21964542 (Version 2)
Quarter: 2023Q1

REPORT INFORMATION
  Report Type: Spontaneous
  Country: US (occurrence: US)
  Receive Date: 20230207
  Receipt Date: 20230215
  Transmission Date: 20230417
  Serious: Yes (Other)
  Sender: FDA-Public Use
  Company Number: US-GILEAD-2023-0615139

PATIENT
  Age: 54 Year
  Sex: Male

DRUGS (17)
  1. VIREAD [Suspect]
     Active Substance: TENOFOVIR DISOPROXIL FUMARATE
     Indication: HIV infection
     Dosage: UNK
     Route: 065
  2. ALBUTEROL SULFATE [Concomitant]
     Active Substance: ALBUTEROL SULFATE
  3. ATORVASTATIN [Concomitant]
     Active Substance: ATORVASTATIN
  4. BUPRENORPHINE\NALOXONE [Concomitant]
     Active Substance: BUPRENORPHINE\NALOXONE
  5. DOXEPIN [Concomitant]
     Active Substance: DOXEPIN
  6. EZETIMIBE [Concomitant]
     Active Substance: EZETIMIBE
  7. GABAPENTIN [Concomitant]
     Active Substance: GABAPENTIN
  8. HYDROXYZINE [Concomitant]
     Active Substance: HYDROXYZINE HYDROCHLORIDE
  9. LISINOPRIL [Concomitant]
     Active Substance: LISINOPRIL
  10. NICOTINE [Concomitant]
     Active Substance: NICOTINE
  11. PROMETHAZINE [Concomitant]
     Active Substance: PROMETHAZINE HYDROCHLORIDE
  12. RISPERIDONE [Concomitant]
     Active Substance: RISPERIDONE
  13. TIOTROPIUM [Concomitant]
     Active Substance: TIOTROPIUM
  14. VENLAFAXINE [Concomitant]
     Active Substance: VENLAFAXINE HYDROCHLORIDE
  15. WARFARIN [Concomitant]
     Active Substance: WARFARIN
  16. LITHIUM [Concomitant]
     Active Substance: LITHIUM
  17. PALIPERIDONE [Concomitant]
     Active Substance: PALIPERIDONE

REACTIONS (1)
  - Fanconi syndrome acquired [Unknown]
